FAERS Safety Report 5306668-X (Version None)
Quarter: 2007Q2

REPORT INFORMATION
  Report Type: 
  Country: None (occurrence: None)
  Receive Date: 20070424
  Receipt Date: 20070412
  Transmission Date: 20071010
  Serious: Yes (Other)
  Sender: FDA-Public Use
  Company Number: US-PFIZER INC-2007030395

PATIENT
  Sex: Female
  Weight: 60.8 kg

DRUGS (13)
  1. PREDNISONE TAB [Interacting]
     Indication: HYPERSENSITIVITY
     Route: 048
     Dates: start: 20050101, end: 20050101
  2. PREDNISONE TAB [Interacting]
     Route: 042
     Dates: start: 20050101, end: 20050101
  3. CHANTIX [Suspect]
     Indication: SMOKING CESSATION THERAPY
     Dates: start: 20070411, end: 20070412
  4. IODINE [Interacting]
     Indication: ANGIOGRAM
     Dates: start: 20050101, end: 20050101
  5. CARDIZEM [Concomitant]
  6. DEMADEX [Concomitant]
  7. SYNTHROID [Concomitant]
  8. ASPIRIN [Concomitant]
  9. TRICOR [Concomitant]
  10. ZOCOR [Concomitant]
  11. TYLENOL [Concomitant]
  12. POTASSIUM ACETATE [Concomitant]
  13. MAGNESIUM [Concomitant]

REACTIONS (6)
  - BLOOD GLUCOSE INCREASED [None]
  - BLOOD PRESSURE INCREASED [None]
  - CHILLS [None]
  - DRUG ERUPTION [None]
  - DRUG INTERACTION [None]
  - SWELLING [None]
